FAERS Safety Report 19908932 (Version 4)
Quarter: 2024Q1

REPORT INFORMATION
  Report Type: Spontaneous
  Country: FR (occurrence: None)
  Receive Date: 20211001
  Receipt Date: 20240112
  Transmission Date: 20240410
  Serious: Yes (Hospitalization)
  Sender: FDA-Public Use
  Company Number: 2021A753558

PATIENT
  Age: 476 Month
  Sex: Female
  Weight: 95 kg

DRUGS (6)
  1. FASENRA [Suspect]
     Active Substance: BENRALIZUMAB
     Indication: Asthma
     Route: 058
     Dates: start: 20201217, end: 20210830
  2. FASENRA [Suspect]
     Active Substance: BENRALIZUMAB
     Indication: Asthma
     Route: 058
     Dates: start: 20200320, end: 20201217
  3. FASENRA [Suspect]
     Active Substance: BENRALIZUMAB
     Indication: Asthma
     Dosage: EVERY 6 WEEKS
     Route: 058
     Dates: start: 20210830
  4. UNSPECIFIED INGREDIENT [Concomitant]
     Active Substance: UNSPECIFIED INGREDIENT
     Indication: Asthma
     Route: 048
     Dates: start: 20170102
  5. LAMA [Concomitant]
     Indication: Asthma
     Route: 048
     Dates: start: 20170112
  6. TEZEPELUMAB [Concomitant]
     Active Substance: TEZEPELUMAB
     Indication: Asthma
     Route: 042
     Dates: start: 20230807

REACTIONS (4)
  - Condition aggravated [Unknown]
  - Bronchospasm [Recovered/Resolved]
  - Headache [Recovered/Resolved]
  - Off label use [Recovered/Resolved]

NARRATIVE: CASE EVENT DATE: 20201217
